FAERS Safety Report 9492305 (Version 1)
Quarter: 2013Q3

REPORT INFORMATION
  Report Type: Spontaneous
  Country: US (occurrence: US)
  Receive Date: 20130830
  Receipt Date: 20130830
  Transmission Date: 20140515
  Serious: Yes (Other)
  Sender: FDA-Public Use
  Company Number: PHHY2013US092189

PATIENT
  Age: 76 Year
  Sex: Female

DRUGS (2)
  1. VENLAFAXINE [Suspect]
     Indication: CATAPLEXY
     Dosage: 75 MG/DAY
  2. VENLAFAXINE [Suspect]
     Dosage: 150 MG/DAY

REACTIONS (5)
  - Cataplexy [Recovered/Resolved]
  - Withdrawal syndrome [Unknown]
  - Dysarthria [Unknown]
  - Muscular weakness [Unknown]
  - Vomiting [Unknown]
